FAERS Safety Report 20581950 (Version 1)
Quarter: 2022Q1

REPORT INFORMATION
  Report Type: Spontaneous
  Country: US (occurrence: None)
  Receive Date: 20220310
  Receipt Date: 20220310
  Transmission Date: 20220423
  Serious: Yes (Life-Threatening, Hospitalization, Disabling)
  Sender: FDA-Public Use
  Company Number: None

PATIENT
  Age: 66 Year
  Sex: Female
  Weight: 121.5 kg

DRUGS (1)
  1. CUVITRU [Suspect]
     Active Substance: HUMAN IMMUNOGLOBULIN G
     Indication: Immunodeficiency common variable
     Dosage: OTHER QUANTITY : 120 ML;?OTHER FREQUENCY : 10 DAYS;?
     Route: 058
     Dates: start: 20191120, end: 20220129

REACTIONS (5)
  - Musculoskeletal stiffness [None]
  - Tachycardia [None]
  - Dyspnoea [None]
  - Heart rate increased [None]
  - Cardiac failure [None]

NARRATIVE: CASE EVENT DATE: 20211209
